FAERS Safety Report 8312961-9 (Version None)
Quarter: 2012Q2

REPORT INFORMATION
  Report Type: 
  Country: None (occurrence: None)
  Receive Date: 20120424
  Receipt Date: 20120412
  Transmission Date: 20120825
  Serious: Yes (Hospitalization, Other)
  Sender: FDA-Public Use
  Company Number: 2012P1013013

PATIENT
  Age: 80 Year
  Sex: Male

DRUGS (3)
  1. ATORVASTATIN CALCIUM [Concomitant]
  2. LOSARTAN POTASSIUM [Concomitant]
  3. WARFARIN SODIUM [Suspect]
     Dosage: 7.5 MG; QD; PO
     Route: 048
     Dates: start: 20120103

REACTIONS (3)
  - CEREBROVASCULAR ACCIDENT [None]
  - PRODUCT QUALITY ISSUE [None]
  - INTERNATIONAL NORMALISED RATIO DECREASED [None]
